FAERS Safety Report 5743847-1 (Version None)
Quarter: 2008Q2

REPORT INFORMATION
  Report Type: 
  Country: None (occurrence: None)
  Receive Date: 20080519
  Receipt Date: 20080519
  Transmission Date: 20081010
  Serious: Yes (Other)
  Sender: FDA-Public Use
  Company Number: None

PATIENT
  Age: 51 Year
  Sex: Female
  Weight: 55.3388 kg

DRUGS (2)
  1. LEXAPRO [Suspect]
     Indication: ANXIETY
     Dosage: 20 MG    ONCE DAILY          PO
     Route: 048
     Dates: start: 20070821, end: 20080513
  2. LEXAPRO [Suspect]
     Indication: DEPRESSION
     Dosage: 20 MG    ONCE DAILY          PO
     Route: 048
     Dates: start: 20070821, end: 20080513

REACTIONS (4)
  - ACTIVITIES OF DAILY LIVING IMPAIRED [None]
  - ANXIETY [None]
  - DEPRESSION [None]
  - FATIGUE [None]
